FAERS Safety Report 6344392-5 (Version None)
Quarter: 2009Q3

REPORT INFORMATION
  Report Type: 
  Country: None (occurrence: None)
  Receive Date: 20090821
  Receipt Date: 20090505
  Transmission Date: 20100115
  Serious: No
  Sender: FDA-Public Use
  Company Number: 8045823

PATIENT
  Age: 26 Year
  Sex: Female
  Weight: 68.1 kg

DRUGS (1)
  1. CIMZIA [Suspect]
     Indication: CROHN'S DISEASE
     Dosage: 400 MG SC
     Route: 058

REACTIONS (3)
  - DIZZINESS [None]
  - NIGHT SWEATS [None]
  - VOMITING [None]
